FAERS Safety Report 20761554 (Version 1)
Quarter: 2022Q2

REPORT INFORMATION
  Report Type: Spontaneous
  Country: US (occurrence: US)
  Receive Date: 20220428
  Receipt Date: 20220428
  Transmission Date: 20220721
  Serious: No
  Sender: FDA-Public Use
  Company Number: US-TEVA-2022-US-2024291

PATIENT
  Age: 77 Year
  Sex: Female

DRUGS (3)
  1. LORAZEPAM [Suspect]
     Active Substance: LORAZEPAM
     Indication: Anxiety
     Dosage: 3 MILLIGRAM DAILY; FORM STRENGTH: 1 MG
     Route: 065
     Dates: start: 202101, end: 2021
  2. LORAZEPAM [Suspect]
     Active Substance: LORAZEPAM
     Dosage: 3 MILLIGRAM DAILY; FORM STRENGTH: 1 MG
     Route: 065
     Dates: start: 20211202
  3. LORAZEPAM [Suspect]
     Active Substance: LORAZEPAM
     Route: 065

REACTIONS (5)
  - Drug ineffective [Unknown]
  - Feeling drunk [Unknown]
  - Cognitive disorder [Unknown]
  - Anxiety [Unknown]
  - Sedation [Unknown]

NARRATIVE: CASE EVENT DATE: 20210101
